FAERS Safety Report 9895293 (Version 1)
Quarter: 2014Q1

REPORT INFORMATION
  Report Type: Spontaneous
  Country: US (occurrence: US)
  Receive Date: 20140213
  Receipt Date: 20140213
  Transmission Date: 20141002
  Serious: Yes (Hospitalization)
  Sender: FDA-Public Use
  Company Number: US-BRISTOL-MYERS SQUIBB COMPANY-18722520

PATIENT
  Age: 46 Year
  Sex: Female

DRUGS (4)
  1. ORENCIA [Suspect]
     Indication: RHEUMATOID ARTHRITIS
     Route: 042
     Dates: start: 200711, end: 201212
  2. ENBREL [Suspect]
  3. METHOTREXATE [Suspect]
  4. REMICADE [Concomitant]
     Indication: HYPERSENSITIVITY

REACTIONS (1)
  - Infection [Unknown]
